FAERS Safety Report 4831505-7 (Version None)
Quarter: 2005Q4

REPORT INFORMATION
  Report Type: 
  Country: None (occurrence: None)
  Receive Date: 20051114
  Receipt Date: 20051103
  Transmission Date: 20060501
  Serious: Yes (Hospitalization, Other)
  Sender: FDA-Public Use
  Company Number: 2005125514

PATIENT
  Age: 65 Year
  Sex: Female
  Weight: 56 kg

DRUGS (1)
  1. LYRICA [Suspect]
     Indication: NEUROBORRELIOSIS
     Dosage: 150 MG ORAL
     Route: 048
     Dates: start: 20050311, end: 20050701

REACTIONS (11)
  - ARRHYTHMIA [None]
  - ARTHRALGIA [None]
  - CONDITION AGGRAVATED [None]
  - ELECTROCARDIOGRAM QRS COMPLEX ABNORMAL [None]
  - ELECTROCARDIOGRAM T WAVE INVERSION [None]
  - ERYTHEMA [None]
  - EXTRASYSTOLES [None]
  - NEUROBORRELIOSIS [None]
  - OEDEMA PERIPHERAL [None]
  - PERICARDIAL EFFUSION [None]
  - SCIATICA [None]
